FAERS Safety Report 21666727 (Version 1)
Quarter: 2022Q4

REPORT INFORMATION
  Report Type: Spontaneous
  Country: FR (occurrence: FR)
  Receive Date: 20221201
  Receipt Date: 20221201
  Transmission Date: 20230113
  Serious: Yes (Hospitalization)
  Sender: FDA-Public Use
  Company Number: FR-DENTSPLY-2022SCDP000342

PATIENT
  Age: 55 Year
  Sex: Female
  Weight: 57.2 kg

DRUGS (4)
  1. EPINEPHRINE BITARTRATE\LIDOCAINE HYDROCHLORIDE [Suspect]
     Active Substance: EPINEPHRINE BITARTRATE\LIDOCAINE HYDROCHLORIDE
     Indication: Anaesthesia
     Dosage: UNK
     Dates: start: 20220928, end: 20220928
  2. PREDNISOLONE ACETATE [Suspect]
     Active Substance: PREDNISOLONE ACETATE
     Indication: Back pain
     Dosage: 1 DOSAGE FORM TOTAL
     Route: 014
     Dates: start: 20220928, end: 20220928
  3. CHLORHEXIDINE GLUCONATE [Suspect]
     Active Substance: CHLORHEXIDINE GLUCONATE
     Indication: Infection prophylaxis
     Dosage: UNK
     Route: 003
     Dates: start: 20220928, end: 20220928
  4. IOPAMIDOL [Suspect]
     Active Substance: IOPAMIDOL
     Indication: Discogram
     Dosage: 2 MILLILITER TOTAL IOPAMIRON 200 (200 MG IODINE PER ML) SOLUTION FOR INJECTION
     Route: 014
     Dates: start: 20220928, end: 20220928

REACTIONS (1)
  - Henoch-Schonlein purpura [None]

NARRATIVE: CASE EVENT DATE: 20220928
